FAERS Safety Report 23772298 (Version 2)
Quarter: 2024Q2

REPORT INFORMATION
  Report Type: Spontaneous
  Country: JP (occurrence: JP)
  Receive Date: 20240423
  Receipt Date: 20240603
  Transmission Date: 20240717
  Serious: Yes (Life-Threatening)
  Sender: FDA-Public Use
  Company Number: JP-NBI-BJ202407204

PATIENT
  Age: 75 Year
  Sex: Female

DRUGS (1)
  1. DABIGATRAN ETEXILATE MESYLATE [Suspect]
     Active Substance: DABIGATRAN ETEXILATE MESYLATE
     Indication: Atrial fibrillation
     Route: 048
     Dates: start: 20240407, end: 20240426

REACTIONS (1)
  - Venous injury [Recovered/Resolved]

NARRATIVE: CASE EVENT DATE: 20240408
